FAERS Safety Report 7320827-6 (Version None)
Quarter: 2011Q1

REPORT INFORMATION
  Report Type: 
  Country: None (occurrence: None)
  Receive Date: 20110215
  Receipt Date: 20110202
  Transmission Date: 20110831
  Serious: Yes (Other)
  Sender: FDA-Public Use
  Company Number: 025790

PATIENT
  Age: 30 Year
  Sex: Female

DRUGS (4)
  1. PRIMIDONE [Concomitant]
  2. KEPPRA [Suspect]
     Indication: ENCEPHALITIS
     Dosage: (500 MG BID ORAL) ; (500 MG QD ORAL)
     Route: 048
  3. LAMICTAL [Concomitant]
  4. MAGNESIUM OXIDE [Concomitant]

REACTIONS (3)
  - PREGNANCY [None]
  - DRUG EXPOSURE DURING PREGNANCY [None]
  - ABORTION INDUCED [None]
